FAERS Safety Report 4878059-7 (Version None)
Quarter: 2006Q1

REPORT INFORMATION
  Report Type: 
  Country: None (occurrence: None)
  Receive Date: 20060110
  Receipt Date: 20050929
  Transmission Date: 20060701
  Serious: Yes (Other)
  Sender: FDA-Public Use
  Company Number: 2005BH002552

PATIENT
  Sex: Female

DRUGS (6)
  1. DEXTROSE 5% [Suspect]
     Indication: CERVIX CARCINOMA
     Dosage: EVERY 4 WK; IV
     Route: 042
  2. DEXTROSE 5% [Suspect]
     Indication: UTERINE CANCER
     Dosage: EVERY 4 WK; IV
     Route: 042
  3. CARBOPLATIN [Suspect]
     Indication: CERVIX CARCINOMA
     Dosage: EVERY 4 WK; IV
     Route: 042
  4. CARBOPLATIN [Suspect]
     Indication: UTERINE CANCER
     Dosage: EVERY 4 WK; IV
     Route: 042
  5. PEGYLATED LIPOSOMAL DOXORUBICIN (NO PREF. NAME) [Suspect]
     Indication: CERVIX CARCINOMA
     Dosage: 35 MG/M**2; EVERY 4 WK; IV
     Route: 042
  6. PEGYLATED LIPOSOMAL DOXORUBICIN (NO PREF. NAME) [Suspect]
     Indication: UTERINE CANCER
     Dosage: 35 MG/M**2; EVERY 4 WK; IV
     Route: 042

REACTIONS (2)
  - DRUG TOXICITY [None]
  - PANCYTOPENIA [None]
